FAERS Safety Report 9683920 (Version 1)
Quarter: 2013Q4

REPORT INFORMATION
  Report Type: Spontaneous
  Country: US (occurrence: US)
  Receive Date: 20131112
  Receipt Date: 20131112
  Transmission Date: 20140711
  Serious: No
  Sender: FDA-Public Use
  Company Number: US-MALLINCKRODT-T201304761

PATIENT
  Age: 55 Year
  Sex: Female
  Weight: 61.22 kg

DRUGS (4)
  1. FENTANYL TRANSDERMAL SYSTEM [Suspect]
     Indication: PAIN
     Dosage: 75 UG/HR, Q 72 HRS
     Route: 062
     Dates: start: 201306
  2. FENTANYL TRANSDERMAL SYSTEM [Suspect]
     Dosage: 50 UG/HR, Q 72 HRS
     Route: 062
     Dates: end: 201306
  3. LORTAB                             /00607101/ [Concomitant]
     Indication: PAIN
     Dosage: UNK
     Route: 048
  4. VALIUM [Concomitant]
     Indication: MUSCLE SPASMS
     Dosage: UNK
     Route: 048

REACTIONS (3)
  - Drug level decreased [Unknown]
  - Incorrect drug administration duration [Not Recovered/Not Resolved]
  - Wrong technique in drug usage process [Not Recovered/Not Resolved]
